FAERS Safety Report 8239908-8 (Version None)
Quarter: 2012Q1

REPORT INFORMATION
  Report Type: 
  Country: None (occurrence: None)
  Receive Date: 20120328
  Receipt Date: 20120319
  Transmission Date: 20120608
  Serious: Yes (Other)
  Sender: FDA-Public Use
  Company Number: DE-JNJFOC-20120108092

PATIENT
  Sex: Male
  Weight: 69 kg

DRUGS (6)
  1. PANTOPRAZOLE [Concomitant]
     Route: 048
     Dates: start: 20111103
  2. LYRICA [Concomitant]
     Route: 048
     Dates: start: 20111103
  3. PREDNISOLONE [Concomitant]
     Indication: PROSTATE CANCER
     Route: 048
     Dates: start: 20110922
  4. FUROSEMIDE [Concomitant]
     Indication: FLUID RETENTION
     Route: 048
     Dates: start: 20111103
  5. ZYTIGA [Suspect]
     Indication: PROSTATE CANCER
     Route: 048
     Dates: start: 20110922
  6. NOVALGIN [Concomitant]
     Indication: PAIN
     Route: 048
     Dates: start: 20111225

REACTIONS (2)
  - HERPES ZOSTER [None]
  - PAIN [None]
